FAERS Safety Report 10729417 (Version 3)
Quarter: 2015Q1

REPORT INFORMATION
  Report Type: Spontaneous
  Country: US (occurrence: US)
  Receive Date: 20150122
  Receipt Date: 20150330
  Transmission Date: 20150721
  Serious: Yes (Hospitalization, Other)
  Sender: FDA-Public Use
  Company Number: US-PFIZER INC-2015018911

PATIENT
  Age: 41 Year
  Sex: Female

DRUGS (8)
  1. CHANTIX [Suspect]
     Active Substance: VARENICLINE TARTRATE
     Indication: SMOKING CESSATION THERAPY
     Dosage: 3 MG OF THE 3 TIMES A DAY
  2. FENTANYL. [Suspect]
     Active Substance: FENTANYL
     Dosage: 100 - 150 MCG, UNK
     Route: 062
  3. TRAZODONE [Concomitant]
     Active Substance: TRAZODONE HYDROCHLORIDE
     Dosage: 100 MG, UNK
  4. CHANTIX [Suspect]
     Active Substance: VARENICLINE TARTRATE
     Dosage: 20 MG, 3X/DAY
  5. ACETAZOLAMIDE. [Concomitant]
     Active Substance: ACETAZOLAMIDE
     Dosage: 200, UNK
  6. FENTANYL. [Suspect]
     Active Substance: FENTANYL
     Indication: PAIN
     Dosage: 150 MG, 1X/DAY (150MG EVERY 24 TO 48 HRS)
     Route: 062
  7. LAMOTRIGINE. [Concomitant]
     Active Substance: LAMOTRIGINE
     Dosage: 150 MG, UNK
  8. XANAX [Concomitant]
     Active Substance: ALPRAZOLAM
     Dosage: 0.5, UNK

REACTIONS (9)
  - Seizure [Not Recovered/Not Resolved]
  - Overdose [Unknown]
  - Loss of consciousness [Not Recovered/Not Resolved]
  - Fracture [Not Recovered/Not Resolved]
  - Amnesia [Not Recovered/Not Resolved]
  - Tongue exfoliation [Not Recovered/Not Resolved]
  - Suicide attempt [Not Recovered/Not Resolved]
  - Aggression [Not Recovered/Not Resolved]
  - Rash [Not Recovered/Not Resolved]
